FAERS Safety Report 14210086 (Version 3)
Quarter: 2018Q1

REPORT INFORMATION
  Report Type: Spontaneous
  Country: US (occurrence: US)
  Receive Date: 20171121
  Receipt Date: 20180329
  Transmission Date: 20180508
  Serious: No
  Sender: FDA-Public Use
  Company Number: US-JNJFOC-20171115293

PATIENT
  Age: 40 Year
  Sex: Male
  Weight: 54.43 kg

DRUGS (3)
  1. SIMPONI [Suspect]
     Active Substance: GOLIMUMAB
     Indication: COLITIS ULCERATIVE
     Route: 058
     Dates: start: 2016
  2. QUETIAPINE. [Concomitant]
     Active Substance: QUETIAPINE
     Indication: SLEEP DISORDER
     Dosage: AT NIGHT
     Route: 065
  3. AZATHIOPRINE. [Concomitant]
     Active Substance: AZATHIOPRINE
     Indication: COLITIS ULCERATIVE
     Dosage: 2 EVERY NIGHT
     Route: 065

REACTIONS (4)
  - Lethargy [Unknown]
  - Drug dose omission [Unknown]
  - Migraine [Unknown]
  - Device malfunction [Unknown]

NARRATIVE: CASE EVENT DATE: 20171111
